FAERS Safety Report 4697186-0 (Version None)
Quarter: 2005Q2

REPORT INFORMATION
  Report Type: 
  Country: None (occurrence: None)
  Receive Date: 20050622
  Receipt Date: 20050609
  Transmission Date: 20051028
  Serious: Yes (Hospitalization)
  Sender: FDA-Public Use
  Company Number: FR-JNJFOC-20050604198

PATIENT
  Age: 29 Year
  Sex: Male

DRUGS (6)
  1. IXPRIM [Suspect]
     Route: 049
  2. BIPROFENID [Suspect]
     Route: 049
  3. ADVIL [Suspect]
     Route: 049
  4. ADVIL [Suspect]
     Route: 049
  5. DEXTROPROPOXYPHEN AND PARACETAMOL [Suspect]
     Route: 049
  6. DEXTROPROPOXYPHEN AND PARACETAMOL [Suspect]
     Route: 049

REACTIONS (7)
  - ABDOMINAL PAIN [None]
  - ABDOMINAL PAIN UPPER [None]
  - ANOREXIA [None]
  - CONSTIPATION [None]
  - FLATULENCE [None]
  - RENAL FAILURE ACUTE [None]
  - VOMITING [None]
